FAERS Safety Report 14994091 (Version 1)
Quarter: 2018Q2

REPORT INFORMATION
  Report Type: Spontaneous
  Country: FR (occurrence: FR)
  Receive Date: 20180611
  Receipt Date: 20180611
  Transmission Date: 20180711
  Serious: Yes (Hospitalization)
  Sender: FDA-Public Use
  Company Number: FR-TEVA-751718ROM

PATIENT
  Age: 67 Year
  Sex: Female

DRUGS (2)
  1. TUSSIDANE 1.5 MG/ML [Suspect]
     Active Substance: DEXTROMETHORPHAN HYDROBROMIDE
     Indication: BRONCHITIS
     Dosage: 12 DOSAGE FORMS DAILY;
     Dates: start: 20161212, end: 20161220
  2. AMOXICILLINE TEVA 500 MG [Suspect]
     Active Substance: AMOXICILLIN
     Indication: BRONCHITIS
     Dosage: 6 DOSAGE FORMS DAILY;
     Route: 048
     Dates: start: 20161212, end: 20161220

REACTIONS (2)
  - Eyelid oedema [Recovered/Resolved]
  - Urticaria [Recovered/Resolved]

NARRATIVE: CASE EVENT DATE: 20161223
